FAERS Safety Report 7591441-2 (Version None)
Quarter: 2011Q3

REPORT INFORMATION
  Report Type: 
  Country: None (occurrence: None)
  Receive Date: 20110701
  Receipt Date: 20110701
  Transmission Date: 20111222
  Serious: Yes (Other)
  Sender: FDA-Public Use
  Company Number: None

PATIENT
  Age: 39 Year
  Sex: Female
  Weight: 65.7716 kg

DRUGS (1)
  1. DEPO-MEDROL [Suspect]

REACTIONS (6)
  - FRUSTRATION [None]
  - VOMITING [None]
  - AGITATION [None]
  - OFF LABEL USE [None]
  - DIARRHOEA [None]
  - ANGER [None]
